FAERS Safety Report 6756726-8 (Version None)
Quarter: 2010Q2

REPORT INFORMATION
  Report Type: 
  Country: None (occurrence: None)
  Receive Date: 20100604
  Receipt Date: 20100601
  Transmission Date: 20101027
  Serious: Yes (Other)
  Sender: FDA-Public Use
  Company Number: FR-BRISTOL-MYERS SQUIBB COMPANY-15129646

PATIENT
  Age: 86 Year
  Sex: Male

DRUGS (3)
  1. COUMADIN [Suspect]
     Indication: ARTERIAL THROMBOSIS
     Dates: start: 20100223, end: 20100525
  2. KARDEGIC [Suspect]
     Indication: ARTERIAL THROMBOSIS
     Dates: start: 20100218, end: 20100525
  3. LOVENOX [Suspect]
     Indication: ARTERIAL THROMBOSIS
     Dates: start: 20100218, end: 20100525

REACTIONS (3)
  - GASTRIC ULCER [None]
  - GASTROENTERITIS [None]
  - MELAENA [None]
